FAERS Safety Report 24357408 (Version 1)
Quarter: 2024Q3

REPORT INFORMATION
  Report Type: Spontaneous
  Country: FR (occurrence: FR)
  Receive Date: 20240924
  Receipt Date: 20240924
  Transmission Date: 20241017
  Serious: Yes (Hospitalization, Other)
  Sender: CHEPLAPHARM
  Company Number: None

PATIENT
  Age: 58 Year
  Sex: Female

DRUGS (12)
  1. CLONAZEPAM [Suspect]
     Active Substance: CLONAZEPAM
     Indication: Psychotic disorder
     Route: 042
     Dates: start: 20240808, end: 20240819
  2. CYAMEMAZINE [Concomitant]
     Active Substance: CYAMEMAZINE
     Dates: start: 20240808, end: 20240810
  3. CYAMEMAZINE [Concomitant]
     Active Substance: CYAMEMAZINE
     Dates: start: 20240814, end: 20240819
  4. CYAMEMAZINE [Concomitant]
     Active Substance: CYAMEMAZINE
  5. OLANZAPINE BENZOATE [Concomitant]
     Active Substance: OLANZAPINE BENZOATE
     Dates: start: 20240808, end: 20240810
  6. OLANZAPINE BENZOATE [Concomitant]
     Active Substance: OLANZAPINE BENZOATE
     Dates: start: 20240814, end: 20240818
  7. OLANZAPINE BENZOATE [Concomitant]
     Active Substance: OLANZAPINE BENZOATE
  8. Lithium LP [Concomitant]
  9. TRIMEPRAZINE [Concomitant]
     Active Substance: TRIMEPRAZINE
  10. VALACYCLOVIR HYDROCHLORIDE [Concomitant]
     Active Substance: VALACYCLOVIR HYDROCHLORIDE
  11. COTRIMOXAZOLE [Concomitant]
     Active Substance: SULFAMETHOXAZOLE\TRIMETHOPRIM
  12. LEUCOVORIN CALCIUM [Concomitant]
     Active Substance: LEUCOVORIN CALCIUM

REACTIONS (4)
  - Pancytopenia [Recovering/Resolving]
  - Escherichia bacteraemia [Unknown]
  - Somnolence [Unknown]
  - Off label use [Recovered/Resolved]

NARRATIVE: CASE EVENT DATE: 20240808
